FAERS Safety Report 10204982 (Version 1)
Quarter: 2014Q2

REPORT INFORMATION
  Report Type: Spontaneous
  Country: US (occurrence: US)
  Receive Date: 20140529
  Receipt Date: 20140529
  Transmission Date: 20141212
  Serious: Yes (Death, Other)
  Sender: FDA-Public Use
  Company Number: US-PFIZER INC-2014145244

PATIENT
  Age: 24 Year
  Sex: Female

DRUGS (2)
  1. VERAPAMIL HCL [Suspect]
     Dosage: APPROXIMATELY 30 TABLETS OF 240 MG EXTENDED RELEASE VERAPAMIL
  2. VERAPAMIL HCL [Suspect]
     Dosage: UNKNOWN QUANTITY OF 80 MG IMMEDIATE RELEASE VERAPAMIL

REACTIONS (2)
  - Intentional overdose [Fatal]
  - Hypotension [Fatal]
